FAERS Safety Report 26105953 (Version 2)
Quarter: 2025Q4

REPORT INFORMATION
  Report Type: Spontaneous
  Country: US (occurrence: US)
  Receive Date: 20251201
  Receipt Date: 20251203
  Transmission Date: 20260117
  Serious: No
  Sender: Vantive US Healthcare
  Company Number: US-VANTIVE-2025VAN005488

PATIENT
  Sex: Male

DRUGS (1)
  1. DIANEAL [Suspect]
     Active Substance: CALCIUM CHLORIDE\DEXTROSE\MAGNESIUM CHLORIDE\SODIUM CHLORIDE\SODIUM LACTATE
     Dosage: 1 BAG
     Route: 033

REACTIONS (4)
  - Dermatitis [Unknown]
  - Urticaria [Unknown]
  - Pruritus [Unknown]
  - Rash [Unknown]
